FAERS Safety Report 24696877 (Version 1)
Quarter: 2024Q4

REPORT INFORMATION
  Report Type: Spontaneous
  Country: US (occurrence: US)
  Receive Date: 20241204
  Receipt Date: 20241204
  Transmission Date: 20250115
  Serious: No
  Sender: ABBVIE
  Company Number: US-ABBVIE-6029406

PATIENT
  Sex: Female

DRUGS (1)
  1. PRED FORTE [Suspect]
     Active Substance: PREDNISOLONE ACETATE
     Indication: Iritis
     Dosage: FORM STRENGTH: 10.5 MILLIGRAM
     Route: 047

REACTIONS (1)
  - Eye pruritus [Not Recovered/Not Resolved]
